FAERS Safety Report 9374820 (Version 1)
Quarter: 2013Q2

REPORT INFORMATION
  Report Type: Report from Study
  Country: IT (occurrence: IT)
  Receive Date: 20130628
  Receipt Date: 20130628
  Transmission Date: 20140414
  Serious: Yes (Death, Life-Threatening)
  Sender: FDA-Public Use
  Company Number: IT-CELGENEUS-083-21880-13033069

PATIENT
  Age: 73 Year
  Sex: Male

DRUGS (9)
  1. REVLIMID [Suspect]
     Indication: MANTLE CELL LYMPHOMA
     Dosage: 15 MILLIGRAM
     Route: 048
     Dates: start: 20130309, end: 20130309
  2. REVLIMID [Suspect]
     Dosage: 15 MILLIGRAM
     Route: 048
     Dates: start: 20130311, end: 20130311
  3. BENDAMUSTINE [Suspect]
     Indication: MANTLE CELL LYMPHOMA
     Dosage: 120 MILLIGRAM
     Route: 041
     Dates: start: 20130309, end: 20130309
  4. BENDAMUSTINE [Suspect]
     Dosage: 120 MILLIGRAM
     Route: 041
     Dates: start: 20130311, end: 20130311
  5. CLEXANE [Concomitant]
     Indication: LEUKOCYTOSIS
     Route: 065
  6. CLEXANE [Concomitant]
     Indication: VENOUS THROMBOSIS
  7. ZYLORIC [Concomitant]
     Indication: TUMOUR LYSIS SYNDROME
     Route: 065
  8. BLOPRESS [Concomitant]
     Indication: HYPERTENSION
     Route: 065
  9. DRAMION [Concomitant]
     Indication: DIABETES MELLITUS
     Route: 065

REACTIONS (4)
  - Renal failure [Fatal]
  - Sepsis [Fatal]
  - Shock [Fatal]
  - Respiratory failure [Not Recovered/Not Resolved]
